FAERS Safety Report 7059838-7 (Version None)
Quarter: 2010Q4

REPORT INFORMATION
  Report Type: 
  Country: None (occurrence: None)
  Receive Date: 20101025
  Receipt Date: 20101015
  Transmission Date: 20110411
  Serious: Yes (Hospitalization)
  Sender: FDA-Public Use
  Company Number: JP-PFIZER INC-2010122536

PATIENT
  Age: 42 Year
  Sex: Female
  Weight: 49 kg

DRUGS (5)
  1. AZULFIDINE [Suspect]
     Indication: RHEUMATOID ARTHRITIS
     Dosage: 500 MG, 2X/DAY
     Route: 048
     Dates: start: 20100325, end: 20100405
  2. CELECOXIB [Concomitant]
     Indication: RHEUMATOID ARTHRITIS
     Dosage: 100 MG, 2X/DAY
     Route: 048
     Dates: start: 20100325, end: 20100406
  3. THYRADIN [Concomitant]
     Dosage: 50 MG, 1X/DAY
     Route: 048
  4. MUCOSTA [Concomitant]
     Dosage: 100 MG, 1X/DAY
     Route: 048
  5. RHYTHMY [Concomitant]
     Dosage: UNK, ONCE DAILY
     Route: 048

REACTIONS (6)
  - ERYTHEMA [None]
  - LIVER DISORDER [None]
  - LYMPHADENOPATHY [None]
  - PLATELET COUNT DECREASED [None]
  - PYREXIA [None]
  - WHITE BLOOD CELL COUNT DECREASED [None]
